FAERS Safety Report 12733454 (Version 2)
Quarter: 2017Q1

REPORT INFORMATION
  Report Type: Spontaneous
  Country: US (occurrence: US)
  Receive Date: 20160912
  Receipt Date: 20170303
  Transmission Date: 20170428
  Serious: Yes (Hospitalization, Other)
  Sender: FDA-Public Use
  Company Number: US-JNJFOC-20160822223

PATIENT
  Age: 80 Year
  Sex: Female

DRUGS (2)
  1. ASPIRIN. [Suspect]
     Active Substance: ASPIRIN
     Indication: PRODUCT USED FOR UNKNOWN INDICATION
     Route: 048
  2. XARELTO [Suspect]
     Active Substance: RIVAROXABAN
     Indication: DEEP VEIN THROMBOSIS
     Route: 048
     Dates: start: 20140312, end: 20140323

REACTIONS (5)
  - Gastrointestinal haemorrhage [Unknown]
  - Vaginal haemorrhage [Recovered/Resolved]
  - Haematoma [Unknown]
  - Rectal haemorrhage [Recovered/Resolved]
  - Haemoptysis [Unknown]

NARRATIVE: CASE EVENT DATE: 20140321
